FAERS Safety Report 8389365-6 (Version None)
Quarter: 2012Q2

REPORT INFORMATION
  Report Type: 
  Country: None (occurrence: None)
  Receive Date: 20120528
  Receipt Date: 20120516
  Transmission Date: 20120825
  Serious: No
  Sender: FDA-Public Use
  Company Number: US-BAYER-2012-052073

PATIENT
  Age: 80 Year
  Sex: Female
  Weight: 51 kg

DRUGS (3)
  1. NAPROXEN SODIUM [Suspect]
     Indication: ARTHRITIS
     Dosage: 1 TABLET AS NEEDED - 100 COUNT
     Route: 048
     Dates: start: 20110501
  2. STATINS [Concomitant]
  3. FOSAMAX [Concomitant]

REACTIONS (2)
  - URTICARIA [None]
  - PRURITUS [None]
